FAERS Safety Report 4928472-4 (Version None)
Quarter: 2006Q1

REPORT INFORMATION
  Report Type: 
  Country: None (occurrence: None)
  Receive Date: 20060223
  Receipt Date: 20060210
  Transmission Date: 20060701
  Serious: Yes (Hospitalization)
  Sender: FDA-Public Use
  Company Number: 2006P1000070

PATIENT
  Age: 66 Year
  Sex: Female
  Weight: 85 kg

DRUGS (10)
  1. RETEPLASE (RETEPLASE) [Suspect]
     Indication: ACUTE MYOCARDIAL INFARCTION
     Dosage: 5 ML;1X;IVB
     Route: 040
     Dates: start: 20040918, end: 20040918
  2. RETEPLASE (RETEPLASE) [Suspect]
     Indication: ACUTE MYOCARDIAL INFARCTION
     Dosage: 5 ML;1X;IVB
     Route: 040
     Dates: start: 20040918, end: 20040918
  3. ABCIXIMAB (ABCIXIMAB) [Suspect]
     Indication: ACUTE MYOCARDIAL INFARCTION
     Dosage: SEE IMAGE
     Route: 042
     Dates: start: 20040918, end: 20040918
  4. ASPIRIN [Concomitant]
  5. BETA BLOCKING AGENTS [Concomitant]
  6. DIURETICS [Concomitant]
  7. CLOPIDOGREL [Concomitant]
  8. TICLOPIDINE HCL [Concomitant]
  9. .... [Suspect]
  10. ACE INHIBITORS [Concomitant]

REACTIONS (2)
  - CARDIAC FAILURE CONGESTIVE [None]
  - CORONARY ARTERY DISEASE [None]
